FAERS Safety Report 17434839 (Version 1)
Quarter: 2020Q1

REPORT INFORMATION
  Report Type: Spontaneous
  Country: US (occurrence: US)
  Receive Date: 20200203
  Receipt Date: 20200203
  Transmission Date: 20200409
  Serious: Yes (Hospitalization)
  Sender: FDA-Public Use
  Company Number: None

PATIENT
  Age: 71 Year
  Sex: Male

DRUGS (2)
  1. IBUPROFEN (IBUPROFEN 600MG TAB) [Suspect]
     Active Substance: IBUPROFEN
     Indication: INFLAMMATION
  2. IBUPROFEN (IBUPROFEN 600MG TAB) [Suspect]
     Active Substance: IBUPROFEN
     Indication: PAIN
     Route: 048
     Dates: start: 20190709, end: 20190926

REACTIONS (5)
  - Duodenal ulcer [None]
  - Gastric haemorrhage [None]
  - Urinary tract infection [None]
  - Gastric ulcer haemorrhage [None]
  - Sepsis [None]

NARRATIVE: CASE EVENT DATE: 20190927
